FAERS Safety Report 9300486 (Version 1)
Quarter: 2012Q4

REPORT INFORMATION
  Report Type: Spontaneous
  Country: DE (occurrence: None)
  Receive Date: 20121114
  Receipt Date: 20121114
  Transmission Date: 20130627
  Serious: Yes (Hospitalization)
  Sender: FDA-Public Use
  Company Number: VAL_00961_2012

PATIENT
  Age: 75 Year
  Sex: Male
  Weight: 87 kg

DRUGS (3)
  1. METOPROLOL (METOPROLOL-METOPROLOL TARTRATE) [Suspect]
     Indication: PRODUCT USED FOR UNKNOWN INDICATION
     Dosage: (DF)
     Dates: start: 2004, end: 20120521
  2. ALISKIREN VS PLACEBO-PLACEBO COMP-PLA+ [Suspect]
     Indication: CARDIAC FAILURE ACUTE
     Dosage: (DF)
     Route: 048
     Dates: start: 20100430, end: 20100520
  3. DIGITOXIN (DIGITOXIN) [Suspect]
     Indication: CARDIAC FAILURE
     Dosage: (DF)
     Dates: start: 2004, end: 20100521

REACTIONS (6)
  - Dizziness [None]
  - Bradyarrhythmia [None]
  - Hypotension [None]
  - Blood creatinine increased [None]
  - Glomerular filtration rate decreased [None]
  - Dyspnoea exertional [None]
